FAERS Safety Report 16226250 (Version 1)
Quarter: 2019Q2

REPORT INFORMATION
  Report Type: Report from Study
  Country: IT (occurrence: IT)
  Receive Date: 20190423
  Receipt Date: 20190423
  Transmission Date: 20190711
  Serious: Yes (Other)
  Sender: FDA-Public Use
  Company Number: IT-TEVA-2019-IT-1038929

PATIENT
  Age: 19 Year
  Sex: Female

DRUGS (2)
  1. ACICLOVIR [Suspect]
     Active Substance: ACYCLOVIR
     Indication: HERPES VIRUS INFECTION
     Route: 048
  2. FUCIDIN [Suspect]
     Active Substance: FUSIDATE SODIUM
     Indication: HERPES VIRUS INFECTION
     Route: 061

REACTIONS (3)
  - Swollen tongue [Recovering/Resolving]
  - Urticaria [Recovering/Resolving]
  - Face oedema [Recovering/Resolving]

NARRATIVE: CASE EVENT DATE: 20181006
